FAERS Safety Report 5694175-4 (Version None)
Quarter: 2008Q2

REPORT INFORMATION
  Report Type: 
  Country: None (occurrence: None)
  Receive Date: 20080402
  Receipt Date: 20080324
  Transmission Date: 20081010
  Serious: Yes (Other)
  Sender: FDA-Public Use
  Company Number: 2008BI005521

PATIENT
  Age: 38 Year
  Sex: Female

DRUGS (2)
  1. TYSABRI [Suspect]
     Indication: MULTIPLE SCLEROSIS
     Dosage: 300 MG; QM; IV
     Route: 042
     Dates: start: 20070101
  2. WELLBUTRIN [Concomitant]

REACTIONS (5)
  - CONVULSION [None]
  - EATING DISORDER [None]
  - GASTRIC DISORDER [None]
  - INSOMNIA [None]
  - STRESS [None]
